FAERS Safety Report 15886987 (Version 13)
Quarter: 2020Q1

REPORT INFORMATION
  Report Type: Spontaneous
  Country: CA (occurrence: CA)
  Receive Date: 20190130
  Receipt Date: 20200311
  Transmission Date: 20200409
  Serious: Yes (Other)
  Sender: FDA-Public Use
  Company Number: CA-CELLTRION INC.-2019CA018248

PATIENT

DRUGS (23)
  1. INFLECTRA [Suspect]
     Active Substance: INFLIXIMAB-DYYB
     Dosage: 5 MG/KG (ROUNDED TO NEAREST VIAL), EVERY 8 WEEKS
     Route: 042
     Dates: start: 20200226
  2. TRAMACET [Concomitant]
     Active Substance: ACETAMINOPHEN\TRAMADOL
     Indication: PAIN
     Dosage: 325 MG, AS NEEDED
     Route: 065
  3. VALTREX [Concomitant]
     Active Substance: VALACYCLOVIR HYDROCHLORIDE
     Dosage: 500 MG, 1X/DAY
     Route: 065
  4. CIPRO 1A PHARMA [Concomitant]
     Active Substance: CIPROFLOXACIN\CIPROFLOXACIN HYDROCHLORIDE
     Dosage: UNK
     Route: 065
  5. INFLECTRA [Suspect]
     Active Substance: INFLIXIMAB-DYYB
     Indication: CROHN^S DISEASE
     Dosage: 5 MG/KG, AT 0, 2, 6, THEN EVERY 8 WEEKS
     Route: 042
     Dates: start: 20180307, end: 20180518
  6. INFLECTRA [Suspect]
     Active Substance: INFLIXIMAB-DYYB
     Dosage: 5 MG/KG (ROUNDED TO NEAREST VIAL), EVERY 6 WEEKS
     Route: 042
     Dates: start: 20180628, end: 20180628
  7. INFLECTRA [Suspect]
     Active Substance: INFLIXIMAB-DYYB
     Dosage: 5 MG/KG ROUNDED TO NEAREST VIAL EVERY 6 WEEKS
     Route: 042
     Dates: start: 20180628
  8. TRINTELLIX [Concomitant]
     Active Substance: VORTIOXETINE HYDROBROMIDE
     Dosage: 10 MG, 1X/DAY
     Route: 065
  9. INFLECTRA [Suspect]
     Active Substance: INFLIXIMAB-DYYB
     Dosage: 5 MG/KG (ROUNDED TO NEAREST VIAL), EVERY 6 WEEKS
     Route: 042
     Dates: start: 20181204, end: 20181204
  10. INFLECTRA [Suspect]
     Active Substance: INFLIXIMAB-DYYB
     Dosage: 5 MG/KG (ROUNDED TO NEAREST VIAL), EVERY 6 WEEKS
     Route: 042
     Dates: start: 20190606, end: 20190606
  11. WELLBUTRIN [Concomitant]
     Active Substance: BUPROPION HYDROCHLORIDE
     Dosage: 150 MG, 1X/DAY
     Route: 065
  12. ZOPICLONE [Concomitant]
     Active Substance: ZOPICLONE
     Dosage: 3.75 MG, 1X/DAY AT NIGHT
     Route: 065
  13. INFLECTRA [Suspect]
     Active Substance: INFLIXIMAB-DYYB
     Dosage: 5 MG/KG (ROUNDED TO NEAREST VIAL), EVERY 6 WEEKS
     Route: 042
     Dates: start: 20190311, end: 20190311
  14. INFLECTRA [Suspect]
     Active Substance: INFLIXIMAB-DYYB
     Dosage: 5 MG/KG (ROUNDED TO NEAREST VIAL), EVERY 8 WEEKS
     Route: 042
     Dates: start: 20191107
  15. METAMUCIL [Concomitant]
     Active Substance: PLANTAGO SEED
     Dosage: UNK, 1X/DAY AT NIGHT
     Route: 065
  16. INFLECTRA [Suspect]
     Active Substance: INFLIXIMAB-DYYB
     Dosage: 5 MG/KG (ROUNDED TO NEAREST VIAL), EVERY 6 WEEKS
     Route: 042
     Dates: start: 20190424, end: 20190424
  17. INFLECTRA [Suspect]
     Active Substance: INFLIXIMAB-DYYB
     Dosage: 5 MG/KG (ROUNDED TO NEAREST VIAL), EVERY 8 WEEKS
     Route: 042
     Dates: start: 20190930
  18. INFLECTRA [Suspect]
     Active Substance: INFLIXIMAB-DYYB
     Dosage: 5 MG/KG (ROUNDED TO NEAREST VIAL), EVERY 8 WEEKS
     Route: 042
     Dates: start: 20200102
  19. INFLECTRA [Suspect]
     Active Substance: INFLIXIMAB-DYYB
     Dosage: 5 MG/KG (ROUNDED TO NEAREST VIAL), EVERY 8 WEEKS
     Route: 042
     Dates: start: 20190802, end: 20190802
  20. CALCIUM [Concomitant]
     Active Substance: CALCIUM
     Dosage: UNK
     Route: 065
  21. PREDNISONE. [Concomitant]
     Active Substance: PREDNISONE
     Dosage: 10 MG, UNK
     Route: 048
     Dates: start: 2018
  22. BIPHENTIN [Concomitant]
     Active Substance: METHYLPHENIDATE
     Indication: ATTENTION DEFICIT/HYPERACTIVITY DISORDER
     Dosage: 20 MG, DAILY
     Route: 065
  23. RITALIN [Concomitant]
     Active Substance: METHYLPHENIDATE HYDROCHLORIDE
     Dosage: UNK UNK, 1X/DAY FOR 1 MONTH
     Route: 065

REACTIONS (28)
  - Fracture displacement [Unknown]
  - Pyrexia [Recovering/Resolving]
  - Visual impairment [Unknown]
  - Bacterial vaginosis [Unknown]
  - Nausea [Recovered/Resolved]
  - Palatal ulcer [Recovered/Resolved]
  - Mouth ulceration [Recovered/Resolved]
  - Localised infection [Recovered/Resolved]
  - Osteoarthritis [Not Recovered/Not Resolved]
  - Condition aggravated [Unknown]
  - Aphthous ulcer [Unknown]
  - Urinary tract infection [Unknown]
  - Blood pressure fluctuation [Unknown]
  - Throat tightness [Recovered/Resolved]
  - Abdominal pain upper [Recovered/Resolved]
  - Arthralgia [Unknown]
  - Inappropriate schedule of product administration [Unknown]
  - Foot fracture [Not Recovered/Not Resolved]
  - Heart rate increased [Recovered/Resolved]
  - Product dose omission [Unknown]
  - Panic reaction [Unknown]
  - Blood pressure increased [Recovered/Resolved]
  - Diarrhoea [Recovered/Resolved]
  - Intermittent claudication [Not Recovered/Not Resolved]
  - Off label use [Unknown]
  - Dyspnoea [Recovered/Resolved]
  - Productive cough [Recovering/Resolving]
  - Discomfort [Recovered/Resolved]

NARRATIVE: CASE EVENT DATE: 2018
